FAERS Safety Report 8320249-5 (Version None)
Quarter: 2012Q2

REPORT INFORMATION
  Report Type: 
  Country: None (occurrence: None)
  Receive Date: 20120430
  Receipt Date: 20120423
  Transmission Date: 20120825
  Serious: Yes (Hospitalization)
  Sender: FDA-Public Use
  Company Number: US-AMGEN-USASP2012025522

PATIENT
  Age: 52 Year
  Sex: Female

DRUGS (1)
  1. ENBREL [Suspect]
     Indication: RHEUMATOID ARTHRITIS
     Dosage: 50 MG, QWK
     Dates: start: 20111227, end: 20120401

REACTIONS (7)
  - NAUSEA [None]
  - WHITE BLOOD CELL COUNT INCREASED [None]
  - ASTHENIA [None]
  - INFLUENZA LIKE ILLNESS [None]
  - URINARY TRACT INFECTION [None]
  - FATIGUE [None]
  - SALIVARY HYPERSECRETION [None]
